FAERS Safety Report 5251203-8 (Version None)
Quarter: 2007Q1

REPORT INFORMATION
  Report Type: 
  Country: None (occurrence: None)
  Receive Date: 20070228
  Receipt Date: 20061006
  Transmission Date: 20070707
  Serious: No
  Sender: FDA-Public Use
  Company Number: US-GLAXOSMITHKLINE-A0620334A

PATIENT
  Age: 46 Year
  Sex: Female

DRUGS (5)
  1. LAMICTAL [Suspect]
     Indication: BIPOLAR DISORDER
     Dosage: 250MG PER DAY
     Route: 048
  2. ZOLOFT [Concomitant]
  3. ABILIFY [Concomitant]
  4. ATIVAN [Concomitant]
  5. NEURONTIN [Concomitant]

REACTIONS (3)
  - ALLERGY TO ANIMAL [None]
  - EYE PRURITUS [None]
  - PRURITUS GENERALISED [None]
